FAERS Safety Report 8548216-7 (Version None)
Quarter: 2012Q3

REPORT INFORMATION
  Report Type: 
  Country: None (occurrence: None)
  Receive Date: 20120730
  Receipt Date: 20101130
  Transmission Date: 20120928
  Serious: Yes (Hospitalization, Other)
  Sender: FDA-Public Use
  Company Number: US-BAYER-201038278NA

PATIENT
  Age: 33 Year
  Sex: Female
  Weight: 66 kg

DRUGS (20)
  1. ANAPROX [Concomitant]
  2. ATROVENT [Concomitant]
     Dosage: UNK UNK, PRN
  3. DROSPIRENONE AND ETHINYL ESTRADIOL [Suspect]
  4. HYOSCYAMINE [Concomitant]
     Dosage: UNK
     Route: 048
  5. YASMIN [Suspect]
     Indication: CONTRACEPTION
  6. HYDROCODONE BITARTRATE AND ACETAMINOPHEN [Concomitant]
     Route: 048
  7. MIRALAX [Concomitant]
     Dosage: UNK
     Dates: start: 20040527
  8. AMOXICILLIN [Concomitant]
     Dosage: UNK
     Route: 048
     Dates: start: 20040608
  9. LEVOXYL [Concomitant]
  10. YAZ [Suspect]
     Indication: ACNE
     Dosage: UNK
  11. PAXIL [Concomitant]
     Indication: ANXIETY
  12. ANTIBIOTICS [Concomitant]
     Indication: INFECTION
  13. ASCORBIC ACID [Concomitant]
     Indication: NASOPHARYNGITIS
  14. PAXIL [Concomitant]
     Indication: DEPRESSION
     Dosage: 20 MG, QD
     Route: 048
  15. GUAIFENESIN [Concomitant]
     Dosage: UNK
     Route: 048
     Dates: start: 20040603
  16. PROCTOFOAM HC [Concomitant]
     Dosage: UNK
     Dates: start: 20040604
  17. YASMIN [Suspect]
     Indication: ACNE
     Dosage: UNK
     Dates: start: 20040301
  18. MULTI-VITAMIN [Concomitant]
  19. EFFEXOR [Concomitant]
     Dosage: 75 MG, QD
  20. NSAID'S [Concomitant]
     Indication: HEADACHE
     Dosage: UNK UNK, PRN

REACTIONS (7)
  - SWELLING [None]
  - ABDOMINAL DISTENSION [None]
  - PELVIC PAIN [None]
  - NAUSEA [None]
  - ABDOMINAL PAIN UPPER [None]
  - URINARY RETENTION [None]
  - CHOLECYSTITIS CHRONIC [None]
